FAERS Safety Report 7680017-4 (Version None)
Quarter: 2011Q3

REPORT INFORMATION
  Report Type: 
  Country: None (occurrence: None)
  Receive Date: 20110812
  Receipt Date: 20110804
  Transmission Date: 20111222
  Serious: Yes (Hospitalization)
  Sender: FDA-Public Use
  Company Number: US-NOVOPROD-333173

PATIENT
  Sex: Female

DRUGS (1)
  1. LEVEMIR [Suspect]
     Indication: PRODUCT USED FOR UNKNOWN INDICATION
     Dosage: 24 U, QD AT NIGHT
     Route: 058

REACTIONS (3)
  - CARDIAC PACEMAKER INSERTION [None]
  - FEELING ABNORMAL [None]
  - DIABETES MELLITUS INADEQUATE CONTROL [None]
